FAERS Safety Report 11966516 (Version 1)
Quarter: 2016Q1

REPORT INFORMATION
  Report Type: Spontaneous
  Country: US (occurrence: None)
  Receive Date: 20160126
  Receipt Date: 20160126
  Transmission Date: 20160526
  Serious: No
  Sender: FDA-Public Use
  Company Number: None

PATIENT
  Age: 58 Year
  Sex: Female
  Weight: 95.26 kg

DRUGS (2)
  1. PROLIA [Suspect]
     Active Substance: DENOSUMAB
     Indication: OSTEOPOROSIS
     Dosage: SHOT ADMINISTERED BY NURSE 2 TIMES PER YEAR INTO THE MUSCLE
     Route: 030
     Dates: start: 20150219, end: 20150820
  2. VITAMINS [Concomitant]
     Active Substance: VITAMINS

REACTIONS (4)
  - Pain in extremity [None]
  - Myalgia [None]
  - Arthralgia [None]
  - Injection site pain [None]

NARRATIVE: CASE EVENT DATE: 20160125
